FAERS Safety Report 8600375-3 (Version None)
Quarter: 2012Q3

REPORT INFORMATION
  Report Type: 
  Country: None (occurrence: None)
  Receive Date: 20120817
  Receipt Date: 20120810
  Transmission Date: 20120928
  Serious: No
  Sender: FDA-Public Use
  Company Number: US-PFIZER INC-2012182891

PATIENT
  Age: 61 Year
  Sex: Female

DRUGS (4)
  1. ORPHINE [Concomitant]
     Dosage: 100 MG, UNK
     Dates: start: 20120716
  2. VITAMIN D [Concomitant]
     Indication: VITAMIN D DECREASED
     Dosage: 5000 IU, UNK
     Dates: start: 20120621
  3. TOVIAZ [Suspect]
     Dosage: UNK
  4. OMEPRAZOLE [Concomitant]
     Indication: GASTROOESOPHAGEAL REFLUX DISEASE
     Dosage: 20 MG, 1X/DAY
     Dates: start: 20120723

REACTIONS (2)
  - ORAL MUCOSAL BLISTERING [None]
  - HYPERSENSITIVITY [None]
